FAERS Safety Report 18714484 (Version 8)
Quarter: 2023Q2

REPORT INFORMATION
  Report Type: Other
  Country: JP (occurrence: JP)
  Receive Date: 20210108
  Receipt Date: 20230525
  Transmission Date: 20230722
  Serious: Yes (Life-Threatening, Hospitalization, Other)
  Sender: FDA-Public Use
  Company Number: JP-ASTELLAS-2021JP000092

PATIENT
  Age: 34 Year
  Sex: Female
  Weight: 58 kg

DRUGS (35)
  1. XOSPATA [Suspect]
     Active Substance: GILTERITINIB
     Indication: Acute myeloid leukaemia
     Route: 048
     Dates: start: 20200109, end: 20200123
  2. XOSPATA [Suspect]
     Active Substance: GILTERITINIB
     Route: 048
     Dates: start: 20200410
  3. HYDREA [Concomitant]
     Active Substance: HYDROXYUREA
     Indication: Acute myeloid leukaemia
     Route: 048
     Dates: start: 20200109, end: 20200114
  4. CEFEPIME HYDROCHLORIDE [Concomitant]
     Active Substance: CEFEPIME HYDROCHLORIDE
     Indication: Febrile neutropenia
     Route: 041
     Dates: start: 20200110, end: 20200125
  5. MICAFUNGIN SODIUM [Concomitant]
     Active Substance: MICAFUNGIN SODIUM
     Indication: Febrile neutropenia
     Route: 041
     Dates: start: 20200111, end: 20200123
  6. CIPROFLOXACIN [Concomitant]
     Active Substance: CIPROFLOXACIN
     Indication: Product used for unknown indication
     Dosage: UNK UNK, UNKNOWN FREQ.
     Route: 065
     Dates: start: 20200125, end: 20200127
  7. AUGMENTIN [Concomitant]
     Active Substance: AMOXICILLIN\CLAVULANATE POTASSIUM
     Indication: Product used for unknown indication
     Dosage: UNK UNK, UNKNOWN FREQ.
     Route: 065
     Dates: start: 20200125, end: 20200127
  8. AUGMENTIN [Concomitant]
     Active Substance: AMOXICILLIN\CLAVULANATE POTASSIUM
     Dosage: 3 DF/DAY, UNKNOWN FREQ.
     Route: 065
     Dates: start: 20200717, end: 20200719
  9. AMOXICILLIN [Concomitant]
     Active Substance: AMOXICILLIN
     Indication: Product used for unknown indication
     Dosage: UNK UNK, UNKNOWN FREQ.
     Route: 065
     Dates: start: 20200125, end: 20200127
  10. AMOXICILLIN [Concomitant]
     Active Substance: AMOXICILLIN
     Dosage: 750 MG/DAY, UNKNOWN FREQ.
     Route: 065
     Dates: start: 20200717, end: 20200719
  11. CYTARABINE [Concomitant]
     Active Substance: CYTARABINE
     Indication: Acute myeloid leukaemia
     Route: 041
     Dates: start: 20200128, end: 20200131
  12. MITOXANTRONE [Concomitant]
     Active Substance: MITOXANTRONE HYDROCHLORIDE
     Indication: Acute myeloid leukaemia
     Route: 041
     Dates: start: 20200130, end: 20200201
  13. BUSULFEX [Concomitant]
     Active Substance: BUSULFAN
     Indication: Acute myeloid leukaemia
     Route: 041
     Dates: start: 20200227, end: 20200301
  14. FLUDARA [Concomitant]
     Active Substance: FLUDARABINE PHOSPHATE
     Indication: Acute myeloid leukaemia
     Route: 041
     Dates: start: 20200227, end: 20200303
  15. ALKERAN [Concomitant]
     Active Substance: MELPHALAN
     Indication: Acute myeloid leukaemia
     Route: 041
     Dates: start: 20200302, end: 20200303
  16. CEFTRIAXONE SODIUM [Concomitant]
     Active Substance: CEFTRIAXONE SODIUM
     Indication: Pneumonia pneumococcal
     Dosage: 2 G/DAY, UNKNOWN FREQ.
     Route: 041
     Dates: start: 20200713, end: 20200715
  17. CEFTRIAXONE SODIUM [Concomitant]
     Active Substance: CEFTRIAXONE SODIUM
     Indication: Meningitis pneumococcal
     Dosage: 4 G/DAY, UNKNOWN FREQ.
     Route: 041
     Dates: start: 20200804, end: 20200818
  18. CEFTRIAXONE SODIUM [Concomitant]
     Active Substance: CEFTRIAXONE SODIUM
     Indication: Pneumococcal bacteraemia
     Dosage: 4 G/DAY, UNKNOWN FREQ.
     Route: 041
     Dates: start: 20201023, end: 20201112
  19. CEFTRIAXONE SODIUM [Concomitant]
     Active Substance: CEFTRIAXONE SODIUM
     Dosage: UNK UNK, UNKNOWN FREQ.
     Route: 065
     Dates: start: 202105
  20. AMPICILLIN AND SULBACTAM [Concomitant]
     Active Substance: AMPICILLIN SODIUM\SULBACTAM SODIUM
     Indication: Pneumonia pneumococcal
     Dosage: 12 G/DAY, UNKNOWN FREQ.
     Route: 065
     Dates: start: 20200716, end: 20200716
  21. AMPICILLIN AND SULBACTAM [Concomitant]
     Active Substance: AMPICILLIN SODIUM\SULBACTAM SODIUM
     Indication: Meningitis pneumococcal
     Dosage: 3 G/DAY, UNKNOWN FREQ.
     Route: 065
     Dates: start: 20201022, end: 20201023
  22. AMPICILLIN AND SULBACTAM [Concomitant]
     Active Substance: AMPICILLIN SODIUM\SULBACTAM SODIUM
     Indication: Pneumococcal bacteraemia
  23. DEXAMETHASONE SODIUM PHOSPHATE [Concomitant]
     Active Substance: DEXAMETHASONE SODIUM PHOSPHATE
     Indication: Meningitis pneumococcal
     Dosage: 40 MG/DAY, UNKNOWN FREQ.
     Route: 065
     Dates: start: 20200804, end: 20200808
  24. VANCOMYCIN [Concomitant]
     Active Substance: VANCOMYCIN
     Indication: Meningitis pneumococcal
     Dosage: 1.75 G/DAY, UNKNOWN FREQ.
     Route: 065
     Dates: start: 20200804
  25. VANCOMYCIN [Concomitant]
     Active Substance: VANCOMYCIN
     Indication: Pneumococcal bacteraemia
     Dosage: 1 G/DAY, UNKNOWN FREQ.
     Route: 065
     Dates: end: 20200818
  26. VANCOMYCIN [Concomitant]
     Active Substance: VANCOMYCIN
     Dosage: 1.25 G/DAY, UNKNOWN FREQ.
     Route: 065
     Dates: start: 20201023
  27. VANCOMYCIN [Concomitant]
     Active Substance: VANCOMYCIN
     Dosage: 1 G/DAY, UNKNOWN FREQ.
     Route: 065
     Dates: end: 20201112
  28. VANCOMYCIN [Concomitant]
     Active Substance: VANCOMYCIN
     Dosage: UNK UNK, UNKNOWN FREQ.
     Route: 065
     Dates: start: 202105
  29. PREVENAR [Concomitant]
     Active Substance: PNEUMOCOCCAL 7-VALENT CONJUGATE VACCINE (DIPHTHERIA CRM197 PROTEIN)
     Indication: Prophylaxis
     Dosage: UNK UNK, UNKNOWN FREQ.
     Route: 065
     Dates: start: 20200924
  30. BIMMUGEN [Concomitant]
     Active Substance: HEPATITIS B VIRUS VACCINE
     Indication: Prophylaxis
     Dosage: UNK UNK, UNKNOWN FREQ.
     Route: 065
     Dates: start: 20200924
  31. ACTHIB [Concomitant]
     Active Substance: HAEMOPHILUS B CONJUGATE VACCINE (TETANUS TOXOID CONJUGATE)\HAEMOPHILUS INFLUENZAE TYPE B STRAIN 1482
     Indication: Prophylaxis
     Dosage: UNK UNK, UNKNOWN FREQ.
     Route: 065
     Dates: start: 20200924
  32. QUATTROVAC [Concomitant]
     Active Substance: DIPHTHERIA AND TETANUS TOXOIDS AND ACELLULAR PERTUSSIS VACCINE ADSORBED\POLIOVIRUS VACCINE, INACTIVA
     Indication: Prophylaxis
     Dosage: UNK UNK, UNKNOWN FREQ.
     Route: 065
     Dates: start: 20200924
  33. JEBIK V [Concomitant]
     Indication: Prophylaxis
     Dosage: UNK UNK, UNKNOWN FREQ.
     Route: 065
  34. AMOXICILLIN [Concomitant]
     Active Substance: AMOXICILLIN
     Indication: Prophylactic chemotherapy
     Dosage: UNK UNK, UNKNOWN FREQ.
     Route: 065
     Dates: end: 202104
  35. AMOXICILLIN [Concomitant]
     Active Substance: AMOXICILLIN
     Dosage: UNK UNK, UNKNOWN FREQ.
     Route: 065

REACTIONS (8)
  - Meningitis pneumococcal [Unknown]
  - Neutropenic colitis [Recovering/Resolving]
  - Pneumonia pneumococcal [Recovered/Resolved]
  - Pneumococcal bacteraemia [Recovered/Resolved]
  - Febrile neutropenia [Recovering/Resolving]
  - Pneumocystis jirovecii pneumonia [Recovered/Resolved]
  - Febrile neutropenia [Recovered/Resolved]
  - Otitis media [Recovering/Resolving]

NARRATIVE: CASE EVENT DATE: 20200110
